FAERS Safety Report 9867991 (Version 2)
Quarter: 2014Q1

REPORT INFORMATION
  Report Type: Spontaneous
  Country: IT (occurrence: IT)
  Receive Date: 20140204
  Receipt Date: 20140331
  Transmission Date: 20141002
  Serious: Yes (Other)
  Sender: FDA-Public Use
  Company Number: IT-BRISTOL-MYERS SQUIBB COMPANY-20094199

PATIENT
  Age: 66 Year
  Sex: Male

DRUGS (4)
  1. ORENCIA FOR INJ 250 MG/VIAL [Suspect]
     Indication: RHEUMATOID ARTHRITIS
     Route: 042
     Dates: start: 20120101, end: 20140101
  2. METHOTREXATE [Concomitant]
  3. FOLINIC ACID [Concomitant]
     Dosage: CAPS
  4. TRIATEC [Concomitant]

REACTIONS (1)
  - Hepatitis B [Unknown]
